FAERS Safety Report 6375678-6 (Version None)
Quarter: 2009Q3

REPORT INFORMATION
  Report Type: 
  Country: None (occurrence: None)
  Receive Date: 20090921
  Receipt Date: 20090921
  Transmission Date: 20100115
  Serious: Yes (Hospitalization)
  Sender: FDA-Public Use
  Company Number: None

PATIENT
  Age: 66 Year
  Sex: Male
  Weight: 118 kg

DRUGS (6)
  1. ABILIFY [Suspect]
     Indication: DEMENTIA
     Dosage: 10MG PO BID
     Route: 048
     Dates: start: 20090330
  2. SEROQUEL [Suspect]
     Dosage: 100MG PO BID
     Route: 048
     Dates: start: 20090101
  3. PRILOSEC [Concomitant]
  4. LISINOPRIL [Concomitant]
  5. ATENOLOL [Concomitant]
  6. VALPROIC ACID [Concomitant]

REACTIONS (2)
  - AGITATION [None]
  - PNEUMONIA [None]
